FAERS Safety Report 20320024 (Version 5)
Quarter: 2022Q1

REPORT INFORMATION
  Report Type: Report from Study
  Country: US (occurrence: US)
  Receive Date: 20220111
  Receipt Date: 20220209
  Transmission Date: 20220423
  Serious: Yes (Hospitalization)
  Sender: FDA-Public Use
  Company Number: US-NOVARTISTESTPH-NVSC2022US004304

PATIENT
  Sex: Female

DRUGS (2)
  1. PIQRAY [Suspect]
     Active Substance: ALPELISIB
     Indication: Product used for unknown indication
     Dosage: UNK (FULL DOSE)
     Route: 065
  2. PIQRAY [Suspect]
     Active Substance: ALPELISIB
     Dosage: 1 DOSAGE FORM, QD
     Route: 065

REACTIONS (8)
  - Chest discomfort [Unknown]
  - Dyspepsia [Unknown]
  - Eating disorder [Unknown]
  - Rash [Unknown]
  - Stomatitis [Unknown]
  - Diarrhoea [Unknown]
  - Malaise [Unknown]
  - Adverse reaction [Unknown]
